FAERS Safety Report 12718026 (Version 2)
Quarter: 2016Q4

REPORT INFORMATION
  Report Type: Spontaneous
  Country: JP (occurrence: JP)
  Receive Date: 20160906
  Receipt Date: 20161128
  Transmission Date: 20170207
  Serious: Yes (Other)
  Sender: FDA-Public Use
  Company Number: JP-MYLANLABS-2016M1037167

PATIENT

DRUGS (4)
  1. MESALAZINE MYLAN [Suspect]
     Active Substance: MESALAMINE
     Indication: PRODUCT USED FOR UNKNOWN INDICATION
     Dosage: 2 DF, TID
     Route: 048
     Dates: start: 20160415, end: 20160818
  2. BIOFERMIN                          /01617201/ [Concomitant]
     Active Substance: BACILLUS SUBTILIS\LACTOBACILLUS ACIDOPHILUS\STREPTOCOCCUS FAECAIS
     Indication: MALAISE
     Dosage: 2 DF, TID
     Route: 048
     Dates: start: 20160815, end: 20160822
  3. ASACOL [Concomitant]
     Active Substance: MESALAMINE
     Indication: PRODUCT USED FOR UNKNOWN INDICATION
     Dosage: 9DF DAILY
     Route: 065
     Dates: start: 20160819, end: 20161110
  4. ASACOL [Concomitant]
     Active Substance: MESALAMINE
     Dosage: 6T DAILY
     Route: 065
     Dates: start: 20161111

REACTIONS (3)
  - Treatment noncompliance [Unknown]
  - Abdominal discomfort [Recovering/Resolving]
  - Colitis ulcerative [Recovering/Resolving]

NARRATIVE: CASE EVENT DATE: 20160815
